FAERS Safety Report 16162129 (Version 1)
Quarter: 2019Q2

REPORT INFORMATION
  Report Type: Spontaneous
  Country: US (occurrence: US)
  Receive Date: 20190302
  Receipt Date: 20190302
  Transmission Date: 20190711
  Serious: Yes (Other)
  Sender: FDA-Public Use
  Company Number: None

PATIENT
  Age: 72 Month
  Sex: Male
  Weight: 91.8 kg

DRUGS (1)
  1. BENZONATATE 100 MG ZYDUS PHARMACY MFG- RX 6468983 KROGER PHARMACY [Suspect]
     Active Substance: BENZONATATE
     Indication: COUGH
     Route: 048
     Dates: start: 20190213, end: 20190213

REACTIONS (4)
  - Blood pressure inadequately controlled [None]
  - Product substitution issue [None]
  - Vomiting [None]
  - Pneumonia aspiration [None]

NARRATIVE: CASE EVENT DATE: 20190213
